FAERS Safety Report 11608377 (Version 2)
Quarter: 2015Q4

REPORT INFORMATION
  Report Type: Spontaneous
  Country: DE (occurrence: DE)
  Receive Date: 20151007
  Receipt Date: 20151029
  Transmission Date: 20160304
  Serious: Yes (Death, Hospitalization, Other)
  Sender: FDA-Public Use
  Company Number: DE-GILEAD-2015-0175777

PATIENT
  Age: 81 Year
  Sex: Male
  Weight: 95 kg

DRUGS (7)
  1. RITUXIMAB [Concomitant]
     Active Substance: RITUXIMAB
     Indication: CHRONIC LYMPHOCYTIC LEUKAEMIA
     Dosage: 375 MG, ONCE
     Route: 042
     Dates: start: 20150407, end: 20150407
  2. ZYDELIG [Suspect]
     Active Substance: IDELALISIB
     Dosage: 200 MG, UNK
     Route: 048
     Dates: start: 20150223, end: 20150324
  3. ZYDELIG [Suspect]
     Active Substance: IDELALISIB
     Dosage: 100 MG, UNK
     Route: 048
     Dates: start: 20150325, end: 20150421
  4. RITUXIMAB [Concomitant]
     Active Substance: RITUXIMAB
     Dosage: 375 MG, ONCE
     Route: 042
     Dates: start: 20150309, end: 20150309
  5. RITUXIMAB [Concomitant]
     Active Substance: RITUXIMAB
     Dosage: 375 MG, ONCE
     Route: 042
     Dates: start: 20150223, end: 20150223
  6. ZYDELIG [Suspect]
     Active Substance: IDELALISIB
     Dosage: 100 MG, UNK
     Route: 048
     Dates: start: 20150219, end: 20150222
  7. ZYDELIG [Suspect]
     Active Substance: IDELALISIB
     Indication: CHRONIC LYMPHOCYTIC LEUKAEMIA
     Dosage: 200 MG, UNK
     Route: 048
     Dates: start: 20150422, end: 20150505

REACTIONS (2)
  - Cholangiocarcinoma [Fatal]
  - Abdominal discomfort [Unknown]
